FAERS Safety Report 4557405-8 (Version None)
Quarter: 2005Q1

REPORT INFORMATION
  Report Type: 
  Country: None (occurrence: None)
  Receive Date: 20050120
  Receipt Date: 20050110
  Transmission Date: 20050727
  Serious: Yes (Life-Threatening, Hospitalization, Other)
  Sender: FDA-Public Use
  Company Number: US-ABBOTT-05P-163-0285802-00

PATIENT
  Sex: Female
  Weight: 51.302 kg

DRUGS (6)
  1. HUMIRA [Suspect]
     Indication: RHEUMATOID ARTHRITIS
     Route: 058
     Dates: start: 20040501
  2. ESOMEPRAZOLE [Concomitant]
     Indication: GASTROOESOPHAGEAL REFLUX DISEASE
     Route: 048
     Dates: start: 20041001
  3. LANSOPRAZOLE [Concomitant]
     Indication: GASTROOESOPHAGEAL REFLUX DISEASE
     Route: 048
     Dates: start: 19950101, end: 20041001
  4. SUCRALFATE [Concomitant]
     Indication: GASTROOESOPHAGEAL REFLUX DISEASE
     Route: 048
     Dates: start: 19950101
  5. VENLAFAXINE HCL [Concomitant]
     Indication: FIBROMYALGIA
     Route: 048
     Dates: start: 20031001
  6. AMILORIDE/HCTZ 50MG [Concomitant]
     Indication: FLUID RETENTION
     Route: 048
     Dates: start: 20000101

REACTIONS (9)
  - ABDOMINAL DISTENSION [None]
  - HAEMOGLOBIN DECREASED [None]
  - HEPATIC ATROPHY [None]
  - HEPATIC CIRRHOSIS [None]
  - HEPATIC CYST [None]
  - HYPOTENSION [None]
  - NAUSEA [None]
  - POST PROCEDURAL HAEMORRHAGE [None]
  - UTERINE DISORDER [None]
